FAERS Safety Report 13749132 (Version 1)
Quarter: 2017Q3

REPORT INFORMATION
  Report Type: Spontaneous
  Country: US (occurrence: US)
  Receive Date: 20170713
  Receipt Date: 20170713
  Transmission Date: 20171127
  Serious: Yes (Other)
  Sender: FDA-Public Use
  Company Number: US-PFIZER INC-2017296422

PATIENT
  Age: 62 Year
  Sex: Female
  Weight: 89 kg

DRUGS (8)
  1. HUMIRA [Concomitant]
     Active Substance: ADALIMUMAB
     Dosage: 40 MG, UNK (40 MG/0.8ML PNKT)
     Route: 058
  2. ADVIL [Concomitant]
     Active Substance: IBUPROFEN
     Dosage: 800 MG, 2X/DAY
     Route: 048
  3. METHOTREXATE SODIUM. [Suspect]
     Active Substance: METHOTREXATE SODIUM
     Dosage: 10 MG, WEEKLY
  4. LIDODERM [Concomitant]
     Active Substance: LIDOCAINE
     Dosage: UNK (APPLY ON 12 HOURS/ OFF 12 HOURS AS DIR)
  5. HYZAAR [Concomitant]
     Active Substance: HYDROCHLOROTHIAZIDE\LOSARTAN POTASSIUM
     Dosage: 1 DF, DAILY [LOSARTAN 100 MG] [HYDROCHLOROTHIAZIDE 12.5 MG]
     Route: 048
  6. FOLVITE [Concomitant]
     Active Substance: FOLIC ACID
     Dosage: 1 MG, DAILY
  7. NORVASC [Concomitant]
     Active Substance: AMLODIPINE BESYLATE
     Dosage: 5 MG, DAILY
     Route: 048
  8. CHOLECALCIFEROL [Concomitant]
     Active Substance: CHOLECALCIFEROL
     Dosage: 1000 IU, DAILY
     Route: 048

REACTIONS (13)
  - Erythema [Unknown]
  - Arthralgia [Unknown]
  - Condition aggravated [Unknown]
  - Pain [Unknown]
  - Back pain [Unknown]
  - Rheumatoid arthritis [Unknown]
  - Malaise [Unknown]
  - Drug intolerance [Unknown]
  - Joint range of motion decreased [Unknown]
  - Rash [Unknown]
  - Psoriasis [Unknown]
  - Pruritus [Unknown]
  - Joint swelling [Unknown]
